FAERS Safety Report 10266516 (Version 4)
Quarter: 2015Q1

REPORT INFORMATION
  Report Type: Report from Study
  Country: BR (occurrence: BR)
  Receive Date: 20140629
  Receipt Date: 20150224
  Transmission Date: 20150720
  Serious: Yes (Other)
  Sender: FDA-Public Use
  Company Number: BR-ABBVIE-14P-020-1252497-00

PATIENT
  Sex: Female
  Weight: 64 kg

DRUGS (12)
  1. HUMIRA [Suspect]
     Active Substance: ADALIMUMAB
     Route: 058
  2. HUMIRA [Suspect]
     Active Substance: ADALIMUMAB
     Route: 058
  3. METHOTREXATE [Suspect]
     Active Substance: METHOTREXATE
     Indication: ARTHRITIS
     Route: 048
     Dates: start: 2002
  4. ENALAPRIL [Concomitant]
     Active Substance: ENALAPRIL
     Indication: HYPERTENSION
     Route: 048
     Dates: start: 2011
  5. REUQUINOL [Concomitant]
     Active Substance: HYDROXYCHLOROQUINE SULFATE
     Indication: ARTHRITIS
     Dosage: HALF TABLET DAILY
     Route: 048
     Dates: start: 2002
  6. OSTEOFORM [Concomitant]
     Indication: OSTEOPENIA
     Route: 048
  7. ENALAPRIL [Concomitant]
     Active Substance: ENALAPRIL
     Indication: BLOOD PRESSURE ABNORMAL
  8. CALCIUM + D3 [Concomitant]
     Active Substance: CALCIUM\CHOLECALCIFEROL
     Indication: BONE DISORDER
     Route: 048
     Dates: start: 2002
  9. DICLOFENAC SODIUM. [Concomitant]
     Active Substance: DICLOFENAC SODIUM
     Indication: PAIN
     Route: 048
  10. HUMIRA [Suspect]
     Active Substance: ADALIMUMAB
     Indication: RHEUMATOID ARTHRITIS
     Route: 058
     Dates: start: 20080101
  11. ARAVA [Concomitant]
     Active Substance: LEFLUNOMIDE
     Indication: ARTHRITIS
     Route: 048
     Dates: start: 2004
  12. HUMIRA [Suspect]
     Active Substance: ADALIMUMAB
     Route: 058

REACTIONS (16)
  - Device dislocation [Unknown]
  - Osteoarthritis [Recovered/Resolved]
  - Blood cholesterol abnormal [Unknown]
  - Lower limb fracture [Recovered/Resolved]
  - Bone graft [Not Recovered/Not Resolved]
  - Internal fixation of fracture [Unknown]
  - Sinusitis [Recovered/Resolved]
  - Device breakage [Recovered/Resolved]
  - Femur fracture [Recovered/Resolved]
  - Bone pain [Recovered/Resolved]
  - Procedural complication [Unknown]
  - Stress [Recovered/Resolved]
  - Femur fracture [Recovering/Resolving]
  - Arthropathy [Recovered/Resolved]
  - Femur fracture [Not Recovered/Not Resolved]
  - Immunodeficiency [Recovered/Resolved]

NARRATIVE: CASE EVENT DATE: 2008
